FAERS Safety Report 4326948-4 (Version None)
Quarter: 2004Q1

REPORT INFORMATION
  Report Type: 
  Country: None (occurrence: None)
  Receive Date: 20040319
  Receipt Date: 20031215
  Transmission Date: 20041129
  Serious: No
  Sender: FDA-Public Use
  Company Number: US-JNJFOC-20031203815

PATIENT
  Age: 45 Year
  Sex: Female
  Weight: 56.6996 kg

DRUGS (6)
  1. ORTHO EVRA [Suspect]
     Indication: CONTRACEPTION
     Dosage: 1 DOSE(S), 3 IN 4 WEEK, TRANSDERMAL
     Route: 062
     Dates: start: 20031130
  2. VITAMIN B (VITAMIN B) [Concomitant]
  3. VITAMIN C (ASCORBIC ACID) [Concomitant]
  4. VITAMIN E [Concomitant]
  5. FLAXSEED OIL (LINSEED OIL) [Concomitant]
  6. CALCIUM MAGNESIUM ZINC (CALCIUM MAGNESIUM ZINC) [Concomitant]

REACTIONS (3)
  - BREAST TENDERNESS [None]
  - NAUSEA [None]
  - SKIN DISORDER [None]
